FAERS Safety Report 8532974-1 (Version None)
Quarter: 2012Q3

REPORT INFORMATION
  Report Type: 
  Country: None (occurrence: None)
  Receive Date: 20120724
  Receipt Date: 20120714
  Transmission Date: 20120928
  Serious: Yes (Hospitalization)
  Sender: FDA-Public Use
  Company Number: IT-JNJFOC-20120603272

PATIENT
  Sex: Male

DRUGS (7)
  1. PALEXIA [Suspect]
     Route: 048
     Dates: start: 20120401, end: 20120523
  2. TAMSULOSIN HYDROCHLORIDE [Concomitant]
     Indication: BENIGN PROSTATIC HYPERPLASIA
     Route: 048
     Dates: start: 19820101
  3. PALEXIA [Suspect]
     Indication: BACK PAIN
     Route: 048
     Dates: start: 20120401, end: 20120523
  4. AVODART [Concomitant]
     Indication: BENIGN PROSTATIC HYPERPLASIA
     Route: 048
     Dates: start: 19820101
  5. PRADAXA [Concomitant]
     Indication: TACHYARRHYTHMIA
     Route: 048
     Dates: start: 20110101
  6. CARVEDILOL [Concomitant]
     Indication: HYPERTENSION
     Route: 048
  7. OMEPRAZOLE [Concomitant]
     Indication: PROPHYLAXIS AGAINST GASTROINTESTINAL ULCER
     Route: 048
     Dates: start: 19970101

REACTIONS (2)
  - MUSCULAR WEAKNESS [None]
  - ASTHENIA [None]
